FAERS Safety Report 17351470 (Version 1)
Quarter: 2020Q1

REPORT INFORMATION
  Report Type: Spontaneous
  Country: JP (occurrence: JP)
  Receive Date: 20200130
  Receipt Date: 20200130
  Transmission Date: 20200409
  Serious: Yes (Hospitalization)
  Sender: FDA-Public Use
  Company Number: JP-BAUSCH-BL-2020-002132

PATIENT
  Age: 63 Year
  Sex: Male

DRUGS (6)
  1. PREDNISOLONE VALERATE ACETATE [Suspect]
     Active Substance: PREDNISOLONE VALERATE ACETATE
     Dosage: RESUMED
     Route: 061
  2. PREDNISOLONE VALERATE ACETATE [Suspect]
     Active Substance: PREDNISOLONE VALERATE ACETATE
     Indication: ECZEMA
     Dosage: FOR SEVERAL YEARS
     Route: 061
  3. HYDROCORTISONE ACETATE. [Suspect]
     Active Substance: HYDROCORTISONE ACETATE
     Indication: ECZEMA
     Dosage: FOR SEVERAL YEARS
     Route: 061
  4. BETAMETHASONE BUTYRATE PROPIONATE [Suspect]
     Active Substance: BETAMETHASONE BUTYRATE PROPIONATE
     Indication: ECZEMA
     Dosage: FOR SEVERAL YEARS
     Route: 061
  5. BETAMETHASONE BUTYRATE PROPIONATE [Suspect]
     Active Substance: BETAMETHASONE BUTYRATE PROPIONATE
     Dosage: RESUMED
     Route: 061
  6. HYDROCORTISONE ACETATE. [Suspect]
     Active Substance: HYDROCORTISONE ACETATE
     Dosage: RESUMED
     Route: 061

REACTIONS (2)
  - Adrenal insufficiency [Recovered/Resolved]
  - Withdrawal syndrome [Unknown]
